FAERS Safety Report 8775442 (Version 1)
Quarter: 2012Q4

REPORT INFORMATION
  Report Type: 
  Country: US (occurrence: US)
  Receive Date: 20120910
  Receipt Date: 20120910
  Transmission Date: 20130627
  Serious: Yes (Hospitalization)
  Sender: FDA-Public Use
  Company Number: US-ASTRAZENECA-2012SE65791

PATIENT
  Age: 55 Year
  Sex: Female

DRUGS (13)
  1. CRESTOR [Suspect]
     Route: 048
  2. LISINOPRIL [Suspect]
     Route: 048
  3. OMEGA-3 [Suspect]
     Indication: BLOOD TRIGLYCERIDES INCREASED
     Route: 048
     Dates: start: 200805
  4. PRAVASTATIN SODIUM [Suspect]
  5. ATORVASTATIN CALCIUM [Suspect]
     Route: 048
  6. FENOFIBRIC ACID [Suspect]
     Indication: BLOOD TRIGLYCERIDES INCREASED
  7. FENOFIBRATE [Concomitant]
  8. ASPIRIN [Concomitant]
  9. METFORMIN HYDROCHLORIDE [Concomitant]
  10. CALCIUM SALT [Concomitant]
  11. CLOPIDOGREL BISULPHATE [Concomitant]
  12. METOPROLOL [Concomitant]
  13. ISOSORBIDE MONONITRATE [Concomitant]

REACTIONS (10)
  - Myocardial infarction [Not Recovered/Not Resolved]
  - Muscle atrophy [Not Recovered/Not Resolved]
  - Low density lipoprotein increased [Not Recovered/Not Resolved]
  - Vitamin D deficiency [Not Recovered/Not Resolved]
  - Pain in extremity [Not Recovered/Not Resolved]
  - Muscle rupture [Not Recovered/Not Resolved]
  - Muscle spasms [Not Recovered/Not Resolved]
  - Diabetes mellitus [Not Recovered/Not Resolved]
  - Nephrolithiasis [Not Recovered/Not Resolved]
  - Migraine [Not Recovered/Not Resolved]
